FAERS Safety Report 19842348 (Version 1)
Quarter: 2021Q3

REPORT INFORMATION
  Report Type: Report from Study
  Country: FR (occurrence: FR)
  Receive Date: 20210915
  Receipt Date: 20210915
  Transmission Date: 20211014
  Serious: Yes (Other)
  Sender: FDA-Public Use
  Company Number: FR-ROCHE-2909842

PATIENT
  Age: 65 Year
  Sex: Male
  Weight: 66 kg

DRUGS (8)
  1. BEVACIZUMAB. [Suspect]
     Active Substance: BEVACIZUMAB
     Indication: SQUAMOUS CELL CARCINOMA OF HEAD AND NECK
     Dosage: ON 20/AUG/2021, THE MOST RECENT DOSE OF BEVACIZUMAB WAS RECEIVED.
     Route: 042
  2. OXYNORMORO [Concomitant]
     Active Substance: OXYCODONE HYDROCHLORIDE
     Indication: PAIN
     Dosage: IF PAIN
  3. PARACETAMOL [Concomitant]
     Active Substance: ACETAMINOPHEN
  4. PULMICORT TURBUHALER [Concomitant]
     Active Substance: BUDESONIDE
  5. SODIUM BICARBONATE. [Concomitant]
     Active Substance: SODIUM BICARBONATE
     Dosage: MOUTHWASH
  6. PHOSPHONEUROS [Concomitant]
     Active Substance: CALCIUM PHOSPHATE, DIBASIC, ANHYDROUS\MAGNESIUM GLYCEROPHOSPHATE\PHOSPHORIC ACID\SODIUM PHOSPHATE, DIBASIC
  7. DUROGESIC [Concomitant]
     Active Substance: FENTANYL
  8. ATEZOLIZUMAB. [Suspect]
     Active Substance: ATEZOLIZUMAB
     Indication: SQUAMOUS CELL CARCINOMA OF HEAD AND NECK
     Dosage: ON 20/AUG/2021, THE MOST RECENT DOSE OF ATEZOLIZUMAB WAS RECEIVED.
     Route: 041
     Dates: start: 20210730

REACTIONS (1)
  - Pharyngeal fistula [Not Recovered/Not Resolved]

NARRATIVE: CASE EVENT DATE: 20210902
